FAERS Safety Report 13389873 (Version 1)
Quarter: 2017Q1

REPORT INFORMATION
  Report Type: Spontaneous
  Country: US (occurrence: US)
  Receive Date: 20170331
  Receipt Date: 20170331
  Transmission Date: 20170429
  Serious: Yes (Other)
  Sender: FDA-Public Use
  Company Number: US-TEVA-754072ACC

PATIENT
  Age: 48 Year
  Sex: Female
  Weight: 107.14 kg

DRUGS (3)
  1. LEVOTHYROXINE. [Concomitant]
     Active Substance: LEVOTHYROXINE
     Indication: HYPOTHYROIDISM
  2. LEVOTHYRONIN [Concomitant]
     Indication: HYPOTHYROIDISM
  3. PARAGARD T 380A [Suspect]
     Active Substance: COPPER
     Indication: CONTRACEPTION
     Dates: start: 20170301, end: 20170317

REACTIONS (4)
  - Menorrhagia [Recovered/Resolved]
  - Feeling abnormal [Recovered/Resolved]
  - Device dislocation [Recovered/Resolved]
  - Vaginal discharge [Unknown]

NARRATIVE: CASE EVENT DATE: 20170301
